FAERS Safety Report 22119695 (Version 2)
Quarter: 2023Q2

REPORT INFORMATION
  Report Type: Spontaneous
  Country: US (occurrence: US)
  Receive Date: 20230321
  Receipt Date: 20230425
  Transmission Date: 20230722
  Serious: No
  Sender: FDA-Public Use
  Company Number: US-LEO Pharma-350289

PATIENT
  Age: 42 Year
  Sex: Female

DRUGS (2)
  1. FINACEA [Concomitant]
     Active Substance: AZELAIC ACID
     Indication: Product used for unknown indication
  2. ADBRY [Suspect]
     Active Substance: TRALOKINUMAB-LDRM
     Indication: Eczema
     Dosage: UNKNOWN
     Dates: start: 20230301, end: 20230308

REACTIONS (3)
  - Condition aggravated [Unknown]
  - Erythema [Unknown]
  - Swelling [Unknown]
